FAERS Safety Report 14007365 (Version 2)
Quarter: 2017Q4

REPORT INFORMATION
  Report Type: Spontaneous
  Country: JP (occurrence: JP)
  Receive Date: 20170925
  Receipt Date: 20171006
  Transmission Date: 20180321
  Serious: Yes (Death, Other)
  Sender: FDA-Public Use
  Company Number: JP-STRIDES ARCOLAB LIMITED-2017SP012864

PATIENT

DRUGS (9)
  1. TACROLIMUS. [Suspect]
     Active Substance: TACROLIMUS
     Indication: STEM CELL TRANSPLANT
     Dosage: UNKNOWN
     Route: 065
  2. PREDNISOLONE. [Suspect]
     Active Substance: PREDNISOLONE
     Indication: STEM CELL TRANSPLANT
     Dosage: UNK
     Route: 065
  3. IDARUBICIN [Concomitant]
     Active Substance: IDARUBICIN
     Dosage: UNK
     Route: 065
  4. ARA-C [Concomitant]
     Active Substance: CYTARABINE
     Dosage: UNK
     Route: 065
  5. IDARUBICIN [Concomitant]
     Active Substance: IDARUBICIN
     Indication: CHLOROMA
     Dosage: UNK
     Route: 065
  6. MELPHALAN. [Concomitant]
     Active Substance: MELPHALAN
     Indication: CHLOROMA
     Dosage: UNK
     Route: 065
  7. ARA-C [Concomitant]
     Active Substance: CYTARABINE
     Indication: CHLOROMA
     Dosage: UNK
     Route: 065
  8. FLUDARABINE [Concomitant]
     Active Substance: FLUDARABINE PHOSPHATE
     Indication: CHLOROMA
     Dosage: UNK
     Route: 065
  9. ANTITHYMOCYTE IMMUNOGLOBULIN [Concomitant]
     Active Substance: THYMOCYTE IMMUNE GLOBULIN NOS
     Indication: CHLOROMA
     Dosage: UNK
     Route: 065

REACTIONS (16)
  - Muscular weakness [Unknown]
  - Blood pressure fluctuation [Unknown]
  - Cerebral haematoma [Unknown]
  - Respiratory arrest [Fatal]
  - Cerebral haemorrhage [Unknown]
  - Altered state of consciousness [Unknown]
  - Prerenal failure [Unknown]
  - Headache [Unknown]
  - Condition aggravated [Fatal]
  - Off label use [Unknown]
  - Brain herniation [Fatal]
  - Hyporeflexia [Unknown]
  - Posterior reversible encephalopathy syndrome [Fatal]
  - Brain oedema [Fatal]
  - Hypertension [Unknown]
  - Syncope [Unknown]
